FAERS Safety Report 19381930 (Version 2)
Quarter: 2021Q3

REPORT INFORMATION
  Report Type: Spontaneous
  Country: FR (occurrence: FR)
  Receive Date: 20210607
  Receipt Date: 20210722
  Transmission Date: 20211014
  Serious: Yes (Hospitalization, Disabling, Other)
  Sender: FDA-Public Use
  Company Number: NVSC2021FR121959

PATIENT
  Sex: Female

DRUGS (11)
  1. ZOPICLONE [Concomitant]
     Active Substance: ZOPICLONE
     Indication: PRODUCT USED FOR UNKNOWN INDICATION
     Dosage: 7.5 MG, QD (DAILY, IN THE EVENING)
     Route: 065
  2. INEXIUM [Concomitant]
     Active Substance: ESOMEPRAZOLE
     Indication: PRODUCT USED FOR UNKNOWN INDICATION
     Dosage: 40 MG (4 IN THE MORNING, 4 DURING THE DAY, 4 IN THE EVENING)
     Route: 065
  3. GABAPENTINE [Concomitant]
     Active Substance: GABAPENTIN
     Indication: PRODUCT USED FOR UNKNOWN INDICATION
     Dosage: 300 MG
     Route: 065
  4. LEXOMIL [Concomitant]
     Active Substance: BROMAZEPAM
     Indication: PRODUCT USED FOR UNKNOWN INDICATION
     Dosage: 6 MG, QD (IN THE EVENING)
     Route: 065
  5. METHOTREXATE. [Concomitant]
     Active Substance: METHOTREXATE
     Indication: PRODUCT USED FOR UNKNOWN INDICATION
     Dosage: UNK
     Route: 065
  6. CYMBALTA [Concomitant]
     Active Substance: DULOXETINE HYDROCHLORIDE
     Indication: PRODUCT USED FOR UNKNOWN INDICATION
     Dosage: 30 MG (2 IN THE MORNING, 1 IN THE EVENING)
     Route: 065
  7. OFLOXACIN. [Suspect]
     Active Substance: OFLOXACIN
     Indication: INFECTIOUS DISEASE CARRIER
     Dosage: 400 MG, BID
     Route: 065
     Dates: start: 20110614, end: 20110722
  8. DUROGESIC [Concomitant]
     Active Substance: FENTANYL
     Indication: PRODUCT USED FOR UNKNOWN INDICATION
     Dosage: 100 UG (EACH 72 HOURS)
     Route: 065
  9. LAROXYL [Concomitant]
     Active Substance: AMITRIPTYLINE HYDROCHLORIDE
     Indication: PRODUCT USED FOR UNKNOWN INDICATION
     Dosage: 25 MG, QD (IN THE EVENING)
     Route: 065
  10. ECONAZOLE. [Concomitant]
     Active Substance: ECONAZOLE NITRATE
     Indication: PRODUCT USED FOR UNKNOWN INDICATION
     Dosage: UNK
     Route: 065
  11. BACTRIM [Concomitant]
     Active Substance: SULFAMETHOXAZOLE\TRIMETHOPRIM
     Indication: PRODUCT USED FOR UNKNOWN INDICATION
     Dosage: 2 DF, QD (2 TABLETS DAILY)
     Route: 065

REACTIONS (23)
  - Arthralgia [Unknown]
  - Back pain [Unknown]
  - Sjogren^s syndrome [Unknown]
  - Cauda equina syndrome [Unknown]
  - Rotator cuff syndrome [Unknown]
  - Tendonitis [Unknown]
  - Hypersomnia [Unknown]
  - Pyelonephritis acute [Unknown]
  - Scleroderma [Unknown]
  - Sciatica [Unknown]
  - Urinary incontinence [Unknown]
  - Paraplegia [Unknown]
  - Antinuclear antibody positive [Unknown]
  - Pyelonephritis [Unknown]
  - Mixed connective tissue disease [Unknown]
  - Telangiectasia [Unknown]
  - Tendon disorder [Unknown]
  - Pain [Unknown]
  - Paraparesis [Unknown]
  - Staphylococcal infection [Unknown]
  - Bone pain [Unknown]
  - Piriformis syndrome [Unknown]
  - Anal incontinence [Unknown]

NARRATIVE: CASE EVENT DATE: 201107
